FAERS Safety Report 4944083-9 (Version None)
Quarter: 2006Q1

REPORT INFORMATION
  Report Type: 
  Country: None (occurrence: None)
  Receive Date: 20060310
  Receipt Date: 20060224
  Transmission Date: 20060701
  Serious: Yes (Hospitalization)
  Sender: FDA-Public Use
  Company Number: US-2006-003953

PATIENT
  Age: 28 Year
  Sex: Female

DRUGS (20)
  1. BETASERON [Suspect]
     Indication: RELAPSING-REMITTING MULTIPLE SCLEROSIS
     Dosage: 0.25 ML, EVERY 2D, SUBCUTANEOUS; SEE IMAGE
     Route: 058
     Dates: start: 20050513, end: 20050525
  2. BETASERON [Suspect]
     Indication: RELAPSING-REMITTING MULTIPLE SCLEROSIS
     Dosage: 0.25 ML, EVERY 2D, SUBCUTANEOUS; SEE IMAGE
     Route: 058
     Dates: start: 20050527, end: 20050608
  3. BETASERON [Suspect]
     Indication: RELAPSING-REMITTING MULTIPLE SCLEROSIS
     Dosage: 0.25 ML, EVERY 2D, SUBCUTANEOUS; SEE IMAGE
     Route: 058
     Dates: start: 20050610, end: 20050701
  4. BETASERON [Suspect]
     Indication: RELAPSING-REMITTING MULTIPLE SCLEROSIS
     Dosage: 0.25 ML, EVERY 2D, SUBCUTANEOUS; SEE IMAGE
     Route: 058
     Dates: start: 20050701
  5. BETAFERON 250 UG, 500 UG AND COPAXONE (COPAXONE) INJECTION [Suspect]
     Indication: RELAPSING-REMITTING MULTIPLE SCLEROSIS
     Dosage: 20 MG, 1X/DAY, SUBCUTANEOUS
     Route: 058
  6. EFFEXOR XR [Concomitant]
  7. IBUPROFEN [Concomitant]
  8. NORTRIPTYLINE (NORTRIPTYLINE) [Concomitant]
  9. TRAZODONE HCL [Concomitant]
  10. MIRTAZAPINE [Concomitant]
  11. HYDROCORTISONE CREAM, 1% [Concomitant]
  12. LORAZEPAM [Concomitant]
  13. AMBIEN [Concomitant]
  14. ACETAMINOPHEN [Concomitant]
  15. ORTHO TRI-CYCLEN LO (NORGESTIMATE) [Concomitant]
  16. NORTRIPTYLINE HCL [Concomitant]
  17. VICODIN [Concomitant]
  18. AMOXICILLIN [Concomitant]
  19. MEDROL [Concomitant]
  20. CEPHALEXIN [Concomitant]

REACTIONS (3)
  - ANXIETY [None]
  - HALLUCINATION [None]
  - PARANOIA [None]
